FAERS Safety Report 5572165-X (Version None)
Quarter: 2007Q4

REPORT INFORMATION
  Report Type: 
  Country: None (occurrence: None)
  Receive Date: 20071221
  Receipt Date: 20071218
  Transmission Date: 20080405
  Serious: Yes (Hospitalization, Other)
  Sender: FDA-Public Use
  Company Number: ES-GILEAD-2007-0014700

PATIENT
  Age: 64 Year
  Sex: Female

DRUGS (3)
  1. VIREAD [Suspect]
     Indication: HIV INFECTION
     Route: 048
     Dates: start: 20061030, end: 20071105
  2. KALETRA [Suspect]
     Indication: HIV INFECTION
     Route: 048
     Dates: start: 20061030, end: 20071105
  3. VIDEX [Suspect]
     Indication: HIV INFECTION
     Route: 048
     Dates: start: 20061030, end: 20071105

REACTIONS (5)
  - HYPERLACTACIDAEMIA [None]
  - MITOCHONDRIAL TOXICITY [None]
  - NAUSEA [None]
  - OSTEONECROSIS [None]
  - WEIGHT DECREASED [None]
